FAERS Safety Report 10650933 (Version 1)
Quarter: 2014Q4

REPORT INFORMATION
  Report Type: Spontaneous
  Country: JP (occurrence: None)
  Receive Date: 20141210
  Receipt Date: 20141210
  Transmission Date: 20150529
  Serious: Yes (Hospitalization, Other)
  Sender: FDA-Public Use
  Company Number: JP-20140347

PATIENT
  Age: 71 Year
  Sex: Male

DRUGS (1)
  1. LIPIODOL ULTRA-FLUIDE [Suspect]
     Active Substance: ETHIODIZED OIL
     Indication: SPINAL MYELOGRAM

REACTIONS (2)
  - Product use issue [None]
  - Arachnoiditis [None]
